FAERS Safety Report 19800718 (Version 1)
Quarter: 2021Q3

REPORT INFORMATION
  Report Type: Spontaneous
  Country: JP (occurrence: JP)
  Receive Date: 20210907
  Receipt Date: 20210907
  Transmission Date: 20211014
  Serious: Yes (Death, Other)
  Sender: FDA-Public Use
  Company Number: JP-009507513-2107JPN001570J

PATIENT
  Age: 68 Year
  Sex: Male

DRUGS (3)
  1. FLUCONAZOLE. [Concomitant]
     Active Substance: FLUCONAZOLE
     Indication: PROPHYLAXIS
     Dosage: UNK
     Route: 065
  2. AMBISOME [Concomitant]
     Active Substance: AMPHOTERICIN B
     Indication: PULMONARY MUCORMYCOSIS
     Dosage: UNK
     Route: 065
  3. CANCIDAS [Suspect]
     Active Substance: CASPOFUNGIN ACETATE
     Indication: PULMONARY MUCORMYCOSIS
     Dosage: 50 MILLIGRAM, QD
     Route: 041

REACTIONS (3)
  - Off label use [Unknown]
  - Therapeutic product effective for unapproved indication [Unknown]
  - Diffuse large B-cell lymphoma [Fatal]
